FAERS Safety Report 4946877-2 (Version None)
Quarter: 2006Q1

REPORT INFORMATION
  Report Type: 
  Country: None (occurrence: None)
  Receive Date: 20060317
  Receipt Date: 20060117
  Transmission Date: 20060701
  Serious: Yes (Hospitalization, Other)
  Sender: FDA-Public Use
  Company Number: 2006AC00137

PATIENT
  Age: 54 Year
  Sex: Male

DRUGS (1)
  1. FELODIPINE [Suspect]
     Dosage: USUAL DOSE 5 MG

REACTIONS (3)
  - ACCIDENTAL OVERDOSE [None]
  - BRADYCARDIA [None]
  - HYPOTENSION [None]
